FAERS Safety Report 11868756 (Version 1)
Quarter: 2015Q4

REPORT INFORMATION
  Report Type: Spontaneous
  Country: FR (occurrence: FR)
  Receive Date: 20151225
  Receipt Date: 20151225
  Transmission Date: 20160305
  Serious: Yes (Hospitalization, Other)
  Sender: FDA-Public Use
  Company Number: FR-ACCORD-036538

PATIENT
  Age: 51 Year
  Sex: Male

DRUGS (1)
  1. CISPLATIN ACCORD [Suspect]
     Active Substance: CISPLATIN
     Indication: HYPOPHARYNGEAL CANCER STAGE IV
     Dosage: STRENGTH: 1 MG/ML
     Route: 042
     Dates: start: 20150907, end: 20151020

REACTIONS (7)
  - General physical health deterioration [Unknown]
  - Mucosal inflammation [Recovered/Resolved]
  - Decreased appetite [Unknown]
  - Acute kidney injury [Not Recovered/Not Resolved]
  - Aplasia [Recovered/Resolved]
  - Septic shock [Unknown]
  - Off label use [Unknown]

NARRATIVE: CASE EVENT DATE: 20151030
